FAERS Safety Report 8800573 (Version 1)
Quarter: 2012Q4

REPORT INFORMATION
  Report Type: Report from Study
  Country: JP (occurrence: JP)
  Receive Date: 20120921
  Receipt Date: 20120921
  Transmission Date: 20130627
  Serious: Yes (Hospitalization)
  Sender: FDA-Public Use
  Company Number: JP-009507513-2012SP019212

PATIENT
  Age: 50 Year
  Sex: Female
  Weight: 63 kg

DRUGS (9)
  1. PEGINTRON [Suspect]
     Indication: HEPATITIS C
     Dosage: 1.5 Microgram per kilogram, qw
     Route: 058
     Dates: start: 20120202, end: 20120216
  2. REBETOL [Suspect]
     Indication: HEPATITIS C
     Dosage: 800 mg, QD
     Route: 048
     Dates: start: 20120202, end: 20120215
  3. REBETOL [Suspect]
     Dosage: 600 mg, QD
     Route: 048
     Dates: start: 20120216, end: 20120222
  4. TELAVIC [Suspect]
     Indication: HEPATITIS C
     Dosage: 2250 mg, QD
     Route: 048
     Dates: start: 20120202, end: 20120222
  5. JANUVIA TABLETS 50MG [Concomitant]
     Indication: DIABETES MELLITUS
     Dosage: 50 mg, QD
     Route: 048
  6. ZYLORIC [Concomitant]
     Dosage: FORMULATION: POR (DETAILS WERE UNKNOWN)
     Route: 048
     Dates: start: 20120206, end: 20120222
  7. CYTOTEC [Concomitant]
     Dosage: FORMULATION: POR (DETAILS UNKNOWN)
     Route: 065
  8. PARIET [Concomitant]
     Dosage: FORMULATION: POR (DETAILS UNKNOWN)
     Route: 048
  9. [COMPOSITION UNSPECIFIED] [Suspect]
     Dosage: Unknown

REACTIONS (3)
  - Blood creatinine increased [Recovered/Resolved]
  - Hyperuricaemia [None]
  - Haemoglobin decreased [None]
